FAERS Safety Report 13276489 (Version 4)
Quarter: 2017Q3

REPORT INFORMATION
  Report Type: Spontaneous
  Country: US (occurrence: US)
  Receive Date: 20170228
  Receipt Date: 20170709
  Transmission Date: 20171127
  Serious: No
  Sender: FDA-Public Use
  Company Number: US-009507513-1702USA009771

PATIENT
  Sex: Female

DRUGS (1)
  1. INTRON A [Suspect]
     Active Substance: INTERFERON ALFA-2B
     Indication: HYPEREOSINOPHILIC SYNDROME
     Dosage: 1 MILLION UNITS, THREE TIMES PER WEEK
     Route: 058
     Dates: start: 20160901

REACTIONS (3)
  - Drug dose omission [Unknown]
  - Inability to afford medication [Unknown]
  - Feeling abnormal [Unknown]
